FAERS Safety Report 8904660 (Version 1)
Quarter: 2012Q4

REPORT INFORMATION
  Report Type: Report from Study
  Country: KR (occurrence: KR)
  Receive Date: 20121113
  Receipt Date: 20121113
  Transmission Date: 20130627
  Serious: Yes (Other)
  Sender: FDA-Public Use
  Company Number: KR-BAYER-2012-113771

PATIENT
  Age: 0 Year
  Sex: Male

DRUGS (1)
  1. ANTIHEMOPHILIC FACTOR (RECOMBINANT) [Suspect]
     Dosage: UNK
     Dates: start: 201209

REACTIONS (2)
  - Haemorrhage [None]
  - Drug ineffective [None]
